FAERS Safety Report 7332492-2 (Version None)
Quarter: 2011Q1

REPORT INFORMATION
  Report Type: 
  Country: None (occurrence: None)
  Receive Date: 20110304
  Receipt Date: 20110224
  Transmission Date: 20110831
  Serious: Yes (Hospitalization)
  Sender: FDA-Public Use
  Company Number: KR-ELI_LILLY_AND_COMPANY-KR201102007014

PATIENT
  Age: 62 Year
  Sex: Female

DRUGS (2)
  1. HUMALOG [Suspect]
     Indication: DIABETES MELLITUS
     Dosage: 10 U, 3/D
     Route: 058
     Dates: start: 20101216
  2. INSULIN DETEMIR [Concomitant]
     Indication: DIABETES MELLITUS
     Dosage: 10 U, EACH EVENING
     Route: 058
     Dates: start: 20101216

REACTIONS (2)
  - INTERVERTEBRAL DISC PROTRUSION [None]
  - GENERAL PHYSICAL HEALTH DETERIORATION [None]
